FAERS Safety Report 4592696-9 (Version None)
Quarter: 2005Q1

REPORT INFORMATION
  Report Type: 
  Country: None (occurrence: None)
  Receive Date: 20050222
  Receipt Date: 20050209
  Transmission Date: 20050727
  Serious: Yes (Other)
  Sender: FDA-Public Use
  Company Number: 2005027311

PATIENT
  Age: 80 Year
  Sex: Male

DRUGS (3)
  1. DIFLUCAN [Suspect]
     Indication: FUNGUS SPUTUM TEST POSITIVE
     Dosage: 100 MG (UNK, 1 D), ORAL
     Route: 048
     Dates: start: 20050204, end: 20050207
  2. TEICOPLANIN             (TEICOPLANIN) [Suspect]
     Indication: ILL-DEFINED DISORDER
     Dosage: INTRAVENOUS
     Route: 042
     Dates: start: 20050205
  3. PIP/TAZO                  (PIPERACILLIN SODIUM, TAZOBACTAM SODIUM) [Suspect]
     Indication: ILL-DEFINED DISORDER
     Dosage: INTRAVENOUS
     Route: 042
     Dates: start: 20050205

REACTIONS (1)
  - RENAL FAILURE ACUTE [None]
